FAERS Safety Report 21639473 (Version 1)
Quarter: 2022Q4

REPORT INFORMATION
  Report Type: Spontaneous
  Country: GB (occurrence: GB)
  Receive Date: 20221124
  Receipt Date: 20221124
  Transmission Date: 20230112
  Serious: Yes (Other)
  Sender: FDA-Public Use
  Company Number: None

PATIENT
  Age: 70 Year
  Sex: Female
  Weight: 123 kg

DRUGS (14)
  1. AMITRIPTYLINE [Suspect]
     Active Substance: AMITRIPTYLINE
     Indication: Product used for unknown indication
     Dosage: TAKE ONE EACH NIGHT FOR 1 WEEK THEN IF CAN TOLE
     Dates: start: 20221025, end: 20221111
  2. ASPIRIN [Concomitant]
     Active Substance: ASPIRIN
     Dosage: TAKE ONE DAILY
     Dates: start: 20210908
  3. ATORVASTATIN [Concomitant]
     Active Substance: ATORVASTATIN
     Dosage: TAKE ONE DAILY
     Dates: start: 20210908
  4. BISOPROLOL [Concomitant]
     Active Substance: BISOPROLOL
     Dosage: TAKE ONE DAILY
     Dates: start: 20210908
  5. DICLOFENAC [Concomitant]
     Active Substance: DICLOFENAC
     Dosage: APPLY TWICE DAILY TO AFFECTED AREAS ON HIP
     Dates: start: 20221025
  6. FUROSEMIDE [Concomitant]
     Active Substance: FUROSEMIDE
     Dosage: TAKE ONE EACH MORNING
     Dates: start: 20210908
  7. HUMALOG [Concomitant]
     Active Substance: INSULIN LISPRO
     Dosage: USE AS DIRECTED
     Dates: start: 20210908
  8. LANSOPRAZOLE [Concomitant]
     Active Substance: LANSOPRAZOLE
     Dosage: TAKE ONE ONCE DAILY
     Dates: start: 20210908
  9. LEVOTHYROXINE [Concomitant]
     Active Substance: LEVOTHYROXINE
     Dosage: TAKE ONE EACH MORNING
     Dates: start: 20210908
  10. POLYETHYLENE GLYCOLS [Concomitant]
     Active Substance: POLYETHYLENE GLYCOLS
     Dosage: TAKE 1-4 SACHETS DAILY FOR CONSTIPATION
     Dates: start: 20210908
  11. METFORMIN [Concomitant]
     Active Substance: METFORMIN HYDROCHLORIDE
     Dosage: 1 TABLET TWICE DAILY
     Dates: start: 20210908
  12. MIRTAZAPINE [Concomitant]
     Active Substance: MIRTAZAPINE
     Dosage: 1 AT NIGHT
     Dates: start: 20220114
  13. RAMIPRIL [Concomitant]
     Active Substance: RAMIPRIL
     Dosage: TAKE ONE TABLET DAILY
     Dates: start: 20210908
  14. INSULIN DEGLUDEC [Concomitant]
     Active Substance: INSULIN DEGLUDEC
     Dosage: START WITH 26UNITS PER DAY AND ADJUST ACCORDING
     Dates: start: 20210908

REACTIONS (1)
  - Epistaxis [Recovered/Resolved]

NARRATIVE: CASE EVENT DATE: 20221111
